FAERS Safety Report 16151574 (Version 1)
Quarter: 2019Q2

REPORT INFORMATION
  Report Type: Spontaneous
  Country: US (occurrence: US)
  Receive Date: 20190228
  Receipt Date: 20190228
  Transmission Date: 20190711
  Serious: No
  Sender: FDA-Public Use
  Company Number: None

PATIENT
  Age: 67 Year
  Sex: Male
  Weight: 84.1 kg

DRUGS (5)
  1. PROPRANOLOL [Concomitant]
     Active Substance: PROPRANOLOL HYDROCHLORIDE
  2. METFORMIN [Concomitant]
     Active Substance: METFORMIN HYDROCHLORIDE
  3. REXULTI [Suspect]
     Active Substance: BREXPIPRAZOLE
     Indication: MAJOR DEPRESSION
     Route: 048
     Dates: start: 20181205, end: 20190214
  4. PAROXETINE. [Concomitant]
     Active Substance: PAROXETINE
  5. ALPRAZOLAM. [Concomitant]
     Active Substance: ALPRAZOLAM

REACTIONS (7)
  - Drooling [None]
  - Gait disturbance [None]
  - Discomfort [None]
  - Malaise [None]
  - Myalgia [None]
  - Abdominal distension [None]
  - Pain in extremity [None]

NARRATIVE: CASE EVENT DATE: 20190214
